FAERS Safety Report 4507064-5 (Version None)
Quarter: 2004Q4

REPORT INFORMATION
  Report Type: 
  Country: None (occurrence: None)
  Receive Date: 20041115
  Receipt Date: 20041101
  Transmission Date: 20050328
  Serious: Yes (Hospitalization)
  Sender: FDA-Public Use
  Company Number: 2004-02886

PATIENT
  Age: 76 Year
  Sex: Male

DRUGS (1)
  1. IMMUCYST (BCG - (CONNAUGHT)), AVENTIS PASTEUR LTD. LOT NOT REP, I2 [Suspect]
     Indication: BLADDER CANCER
     Dosage: 81.0 MG ; B.IN , BLADDER

REACTIONS (4)
  - HEPATIC FUNCTION ABNORMAL [None]
  - HEPATITIS [None]
  - PULMONARY TUBERCULOSIS [None]
  - URINARY TRACT INFECTION [None]
